FAERS Safety Report 9166205 (Version 1)
Quarter: 2013Q1

REPORT INFORMATION
  Report Type: Spontaneous
  Country: QA (occurrence: None)
  Receive Date: 20130301
  Receipt Date: 20130301
  Transmission Date: 20140127
  Serious: Yes (Other)
  Sender: FDA-Public Use
  Company Number: FK201300567

PATIENT
  Sex: 0

DRUGS (1)
  1. ADENOSINE INJECTION (MANUFACTURER UNKNOWN) (ADEOSINE) (ADENOSINE) [Suspect]
     Indication: SUPRAVENTRICULAR TACHYCARDIA
     Route: 040

REACTIONS (3)
  - Supraventricular tachycardia [None]
  - Condition aggravated [None]
  - Blood pressure decreased [None]
